FAERS Safety Report 6386005-2 (Version None)
Quarter: 2009Q4

REPORT INFORMATION
  Report Type: 
  Country: None (occurrence: None)
  Receive Date: 20091002
  Receipt Date: 20081104
  Transmission Date: 20100525
  Serious: No
  Sender: FDA-Public Use
  Company Number: US-ASTRAZENECA-2008UW24679

PATIENT
  Age: 63 Year
  Sex: Female

DRUGS (7)
  1. ARIMIDEX [Suspect]
     Route: 048
     Dates: start: 20071001
  2. COREG [Concomitant]
     Route: 048
  3. SYNTHROID [Concomitant]
     Route: 048
  4. VASOTEC [Concomitant]
     Route: 048
  5. CORTEF [Concomitant]
     Route: 048
  6. ZOCOR [Concomitant]
     Route: 048
  7. FLUODROCORTISONE [Concomitant]
     Route: 048

REACTIONS (2)
  - BONE PAIN [None]
  - MEDICATION ERROR [None]
